FAERS Safety Report 6895089-4 (Version None)
Quarter: 2010Q3

REPORT INFORMATION
  Report Type: 
  Country: None (occurrence: None)
  Receive Date: 20100802
  Receipt Date: 20100722
  Transmission Date: 20110219
  Serious: Yes (Other)
  Sender: FDA-Public Use
  Company Number: US-JNJFOC-20100707880

PATIENT
  Age: 48 Year
  Sex: Male

DRUGS (6)
  1. ITRACONAZOLE [Suspect]
     Indication: COCCIDIOIDOMYCOSIS
     Route: 042
  2. AMPHOTERICIN B [Interacting]
     Indication: COCCIDIOIDOMYCOSIS
     Route: 042
  3. DIGOXIN [Interacting]
     Indication: COCCIDIOIDOMYCOSIS
     Route: 065
  4. VERAPAMIL [Interacting]
     Indication: COCCIDIOIDOMYCOSIS
     Route: 065
  5. WARFARIN SODIUM [Interacting]
     Indication: PRODUCT USED FOR UNKNOWN INDICATION
     Route: 065
  6. HYDROXYZINE [Interacting]
     Indication: PRODUCT USED FOR UNKNOWN INDICATION
     Route: 065

REACTIONS (5)
  - DRUG INTERACTION [None]
  - ELECTROCARDIOGRAM ST-T CHANGE [None]
  - MALAISE [None]
  - NAUSEA [None]
  - NODAL RHYTHM [None]
